FAERS Safety Report 8216746-3 (Version None)
Quarter: 2012Q1

REPORT INFORMATION
  Report Type: 
  Country: None (occurrence: None)
  Receive Date: 20120316
  Receipt Date: 20120307
  Transmission Date: 20120608
  Serious: Yes (Other)
  Sender: FDA-Public Use
  Company Number: GR-ASTRAZENECA-2012SE17452

PATIENT
  Age: 50 Year
  Sex: Male

DRUGS (4)
  1. HEPARIN [Concomitant]
     Indication: ACUTE CORONARY SYNDROME
  2. ASPIRIN [Concomitant]
     Indication: ACUTE CORONARY SYNDROME
  3. GASTROPROPHYLAXIS [Concomitant]
  4. BRILIQUE [Suspect]
     Indication: ACUTE CORONARY SYNDROME
     Route: 048

REACTIONS (1)
  - BRADYCARDIA [None]
